FAERS Safety Report 5179510-8 (Version None)
Quarter: 2006Q4

REPORT INFORMATION
  Report Type: 
  Country: None (occurrence: None)
  Receive Date: 20061211
  Receipt Date: 20061124
  Transmission Date: 20070319
  Serious: Yes (Hospitalization)
  Sender: FDA-Public Use
  Company Number: 2006RR-04683

PATIENT
  Age: 75 Year
  Sex: Male

DRUGS (1)
  1. LISINOPRIL [Suspect]
     Indication: HYPERTENSION

REACTIONS (2)
  - PEMPHIGOID [None]
  - RED BLOOD CELL SEDIMENTATION RATE INCREASED [None]
